FAERS Safety Report 8093917-0 (Version None)
Quarter: 2012Q1

REPORT INFORMATION
  Report Type: 
  Country: None (occurrence: None)
  Receive Date: 20120130
  Receipt Date: 20120125
  Transmission Date: 20120608
  Serious: Yes (Death)
  Sender: FDA-Public Use
  Company Number: US-CELGENEUS-163-21880-11112369

PATIENT
  Sex: Male

DRUGS (5)
  1. BENDAMUSTINE [Concomitant]
     Indication: MULTIPLE MYELOMA
     Dosage: 100 MILLIGRAM
     Route: 041
     Dates: start: 20110801, end: 20111001
  2. REVLIMID [Suspect]
     Dosage: 25 MILLIGRAM
     Route: 048
     Dates: start: 20090901, end: 20100101
  3. REVLIMID [Suspect]
     Dosage: 15 MILLIGRAM
     Route: 048
     Dates: start: 20110801, end: 20111001
  4. REVLIMID [Suspect]
     Indication: MULTIPLE MYELOMA
     Dosage: 15 MILLIGRAM
     Route: 048
     Dates: start: 20081101, end: 20090101
  5. DEXAMETHASONE [Concomitant]
     Indication: MULTIPLE MYELOMA
     Dosage: 40 MILLIGRAM
     Route: 048
     Dates: start: 20110801, end: 20111001

REACTIONS (5)
  - RENAL FAILURE ACUTE [None]
  - LUNG INFECTION PSEUDOMONAL [None]
  - FUNGAL INFECTION [None]
  - SEPSIS [None]
  - MULTIPLE MYELOMA [None]
